FAERS Safety Report 14027104 (Version 1)
Quarter: 2017Q3

REPORT INFORMATION
  Report Type: Spontaneous
  Country: US (occurrence: US)
  Receive Date: 20170929
  Receipt Date: 20170929
  Transmission Date: 20171128
  Serious: Yes (Other)
  Sender: FDA-Public Use
  Company Number: US-AMGEN-USASP2017145227

PATIENT
  Age: 49 Year
  Sex: Female

DRUGS (1)
  1. ENBREL [Suspect]
     Active Substance: ETANERCEPT
     Indication: RHEUMATOID ARTHRITIS
     Dosage: 50 MG, (EVERY 10 DAYS)
     Route: 058
     Dates: start: 201305

REACTIONS (4)
  - Malaise [Unknown]
  - Surgery [Unknown]
  - Off label use [Unknown]
  - Injection site rash [Recovered/Resolved]

NARRATIVE: CASE EVENT DATE: 201305
